FAERS Safety Report 10802626 (Version 1)
Quarter: 2015Q1

REPORT INFORMATION
  Report Type: Spontaneous
  Country: US (occurrence: US)
  Receive Date: 20150217
  Receipt Date: 20150217
  Transmission Date: 20150721
  Serious: No
  Sender: FDA-Public Use
  Company Number: US-BRACCO-010816

PATIENT
  Age: 24 Year
  Sex: Female

DRUGS (3)
  1. ISOVUE 300 [Suspect]
     Active Substance: IOPAMIDOL
     Indication: ARTHROGRAM
     Dosage: 5 ML ISOVUE MIXED WITH 0.1 ML OF GADOVIST AND 20 ML OF NORMAL SALINE
     Route: 014
     Dates: start: 20140403, end: 20140403
  2. NORMAL SALINE [Concomitant]
     Active Substance: SODIUM CHLORIDE
     Indication: ARTHROGRAM
     Dosage: ISOVUE 300 5 ML  MIXED WITH GADOVIST 0.1 ML
     Route: 042
     Dates: start: 20140403, end: 20140403
  3. GADOVIST [Suspect]
     Active Substance: GADOBUTROL
     Indication: ARTHROGRAM
     Dosage: MIXED WITH 5 ML OF  ISOVUE 300 AND 20 ML OF NORMAL SALINE
     Route: 014
     Dates: start: 20140403, end: 20140403

REACTIONS (1)
  - Hypersensitivity [Recovered/Resolved]

NARRATIVE: CASE EVENT DATE: 20140403
